FAERS Safety Report 22296973 (Version 2)
Quarter: 2023Q2

REPORT INFORMATION
  Report Type: Spontaneous
  Country: PL (occurrence: PL)
  Receive Date: 20230509
  Receipt Date: 20230616
  Transmission Date: 20230722
  Serious: Yes (Other)
  Sender: FDA-Public Use
  Company Number: PL-CELLTRION INC.-2023PL009464

PATIENT

DRUGS (6)
  1. BEVACIZUMAB [Suspect]
     Active Substance: BEVACIZUMAB
     Indication: Epithelioid mesothelioma
     Route: 065
  2. CISPLATIN\PEMETREXED [Concomitant]
     Active Substance: CISPLATIN\PEMETREXED
     Dosage: 6 CYCLES
  3. PACLITAXEL [Concomitant]
     Active Substance: PACLITAXEL
  4. GEMCITABINE [Concomitant]
     Active Substance: GEMCITABINE
  5. CARBOPLATIN [Concomitant]
     Active Substance: CARBOPLATIN
  6. VINORELBINE [Concomitant]
     Active Substance: VINORELBINE TARTRATE
     Dosage: 40 MG, EVERY 0.33/WEEK

REACTIONS (2)
  - Peritoneocutaneous fistula [Unknown]
  - Intentional product use issue [Unknown]
